FAERS Safety Report 6153926-5 (Version None)
Quarter: 2009Q2

REPORT INFORMATION
  Report Type: 
  Country: None (occurrence: None)
  Receive Date: 20090409
  Receipt Date: 20090409
  Transmission Date: 20091009
  Serious: Yes (Hospitalization)
  Sender: FDA-Public Use
  Company Number: None

PATIENT
  Sex: Female
  Weight: 53.1 kg

DRUGS (3)
  1. CYTARABINE [Suspect]
     Dosage: 16850 MG
     Dates: end: 20061118
  2. DAUNORUBICIN HCL [Suspect]
     Dosage: 270 MG
     Dates: end: 20060930
  3. DEXAMETHASONE [Suspect]
     Dosage: 40 MG
     Dates: end: 20061118

REACTIONS (3)
  - BLOOD ALKALINE PHOSPHATASE INCREASED [None]
  - FEBRILE NEUTROPENIA [None]
  - PANCYTOPENIA [None]
